FAERS Safety Report 6058416-6 (Version None)
Quarter: 2009Q1

REPORT INFORMATION
  Report Type: 
  Country: None (occurrence: None)
  Receive Date: 20090130
  Receipt Date: 20090127
  Transmission Date: 20090719
  Serious: Yes (Death, Other)
  Sender: FDA-Public Use
  Company Number: US-CELGENEUS-163-21880-08081080

PATIENT
  Sex: Male

DRUGS (2)
  1. REVLIMID [Suspect]
     Indication: MYELODYSPLASTIC SYNDROME
     Route: 048
     Dates: start: 20080513, end: 20080501
  2. DACOGEN [Concomitant]
     Indication: DRUG USE FOR UNKNOWN INDICATION
     Route: 065
     Dates: start: 20080602, end: 20080606

REACTIONS (5)
  - BLAST CELL COUNT INCREASED [None]
  - MYELODYSPLASTIC SYNDROME [None]
  - NEOPLASM PROGRESSION [None]
  - PANCYTOPENIA [None]
  - PYREXIA [None]
